FAERS Safety Report 24866438 (Version 1)
Quarter: 2025Q1

REPORT INFORMATION
  Report Type: Spontaneous
  Country: US (occurrence: US)
  Receive Date: 20250121
  Receipt Date: 20250121
  Transmission Date: 20250408
  Serious: Yes (Life-Threatening, Hospitalization, Other)
  Sender: AUROBINDO
  Company Number: US-AUROBINDO-AUR-APL-2025-003221

PATIENT
  Age: 44 Year
  Sex: Male

DRUGS (2)
  1. PREDNISONE [Suspect]
     Active Substance: PREDNISONE
     Indication: Colitis ulcerative
     Route: 065
  2. IMMUNE GLOBULIN [Concomitant]
     Indication: Evans syndrome
     Route: 042

REACTIONS (2)
  - Rebound effect [Recovered/Resolved]
  - Thrombocytopenia [Recovered/Resolved]
